FAERS Safety Report 24798998 (Version 1)
Quarter: 2025Q1

REPORT INFORMATION
  Report Type: Spontaneous
  Country: CA (occurrence: CA)
  Receive Date: 20250102
  Receipt Date: 20250102
  Transmission Date: 20250409
  Serious: Yes (Other)
  Sender: TEVA
  Company Number: CA-TEVA-VS-3280323

PATIENT
  Age: 29 Year
  Sex: Female

DRUGS (7)
  1. VALACYCLOVIR [Suspect]
     Active Substance: VALACYCLOVIR HYDROCHLORIDE
     Indication: Herpes simplex
     Dosage: DOSE FORM : NOT SPECIFIED
     Route: 048
  2. VITAFUSION MULTIVITES [Concomitant]
     Indication: Product used for unknown indication
     Route: 065
  3. POLYSPORIN TRIPLE ANTIBIOTIC [Concomitant]
     Indication: Product used for unknown indication
     Route: 065
  4. ARTICHOKE [Concomitant]
     Active Substance: ARTICHOKE
     Indication: Product used for unknown indication
     Route: 065
  5. DIETARY SUPPLEMENT\GRAPE SEED EXTRACT [Concomitant]
     Active Substance: DIETARY SUPPLEMENT\GRAPE SEED EXTRACT
     Indication: Product used for unknown indication
     Route: 065
  6. DANDELION [Interacting]
     Active Substance: TARAXACUM OFFICINALE POLLEN
     Indication: Dermatitis
     Route: 048
  7. DIETARY SUPPLEMENT\HERBALS\MILK THISTLE [Concomitant]
     Active Substance: MILK THISTLE
     Indication: Product used for unknown indication
     Route: 065

REACTIONS (2)
  - Coagulation time prolonged [Recovering/Resolving]
  - Drug interaction [Recovering/Resolving]
